FAERS Safety Report 20669384 (Version 2)
Quarter: 2022Q2

REPORT INFORMATION
  Report Type: Spontaneous
  Country: FR (occurrence: FR)
  Receive Date: 20220404
  Receipt Date: 20220413
  Transmission Date: 20220721
  Serious: Yes (Other)
  Sender: FDA-Public Use
  Company Number: FR-LEO Pharma-341850

PATIENT
  Age: 89 Year
  Sex: Female

DRUGS (2)
  1. DAIVOBET [Suspect]
     Active Substance: BETAMETHASONE DIPROPIONATE\CALCIPOTRIENE
     Indication: Psoriasis
     Dosage: DOSAGE : DAIVOBET OINTMENT, TOPICAL APPLICATION SITE: LOWER BUTTOCKS ONE APPLICATION, IN THE EVENING
     Route: 061
     Dates: start: 2022, end: 2022
  2. paroxetine (Deroxat) [Concomitant]
     Indication: Depression
     Dosage: HALF A TABLET, IN THE MORNING

REACTIONS (7)
  - Blindness [Recovered/Resolved]
  - Pustule [Recovered/Resolved]
  - Headache [Recovered/Resolved]
  - Erythema [Recovered/Resolved]
  - Dyspnoea [Recovered/Resolved]
  - Fatigue [Not Recovered/Not Resolved]
  - Pruritus [Recovered/Resolved]
